FAERS Safety Report 22518316 (Version 1)
Quarter: 2023Q2

REPORT INFORMATION
  Report Type: Spontaneous
  Country: CN (occurrence: CN)
  Receive Date: 20230605
  Receipt Date: 20230605
  Transmission Date: 20230722
  Serious: Yes (Other)
  Sender: FDA-Public Use
  Company Number: CN-SA-2023SA165953

PATIENT
  Age: 36 Year
  Sex: Female
  Weight: 54 kg

DRUGS (4)
  1. THYMOGLOBULINE [Suspect]
     Active Substance: LAPINE T-LYMPHOCYTE IMMUNE GLOBULIN
     Indication: Aplastic anaemia
     Dosage: 25 MG, Q4H
     Route: 065
     Dates: start: 20230522, end: 20230522
  2. POTASSIUM CHLORIDE [Concomitant]
     Active Substance: POTASSIUM CHLORIDE
     Dosage: 7.5 ML
     Route: 041
  3. HYDROCORTISONE [Concomitant]
     Active Substance: HYDROCORTISONE
     Dosage: 150 MG
     Route: 065
  4. SODIUM CHLORIDE [Concomitant]
     Active Substance: SODIUM CHLORIDE
     Dosage: 250 ML
     Route: 041

REACTIONS (8)
  - Amaurosis [Recovering/Resolving]
  - Cold sweat [Recovering/Resolving]
  - Heart rate decreased [Recovering/Resolving]
  - Peripheral coldness [Recovering/Resolving]
  - Loss of consciousness [Recovering/Resolving]
  - Unresponsive to stimuli [Recovered/Resolved]
  - Blood pressure decreased [Recovering/Resolving]
  - Pyrexia [Recovering/Resolving]

NARRATIVE: CASE EVENT DATE: 20230522
